FAERS Safety Report 5223058-9 (Version None)
Quarter: 2007Q1

REPORT INFORMATION
  Report Type: 
  Country: None (occurrence: None)
  Receive Date: 20070129
  Receipt Date: 20070118
  Transmission Date: 20070707
  Serious: Yes (Other)
  Sender: FDA-Public Use
  Company Number: GB-MERCK-0701USA03708

PATIENT
  Age: 38 Year
  Sex: Male

DRUGS (1)
  1. ARAMINE [Suspect]
     Route: 042

REACTIONS (1)
  - MENINGITIS ASEPTIC [None]
